FAERS Safety Report 6697141-5 (Version None)
Quarter: 2010Q2

REPORT INFORMATION
  Report Type: 
  Country: None (occurrence: None)
  Receive Date: 20100426
  Receipt Date: 20100416
  Transmission Date: 20101027
  Serious: Yes (Hospitalization)
  Sender: FDA-Public Use
  Company Number: ES-PFIZER INC-2009181740

PATIENT
  Age: 72 Year
  Sex: Female

DRUGS (9)
  1. IRINOTECAN HCL [Suspect]
     Indication: COLORECTAL CANCER METASTATIC
     Dosage: 290 MG, CYCLIC, EVERY 15 DAYS (TDD290MG)
     Route: 042
     Dates: start: 20080620
  2. *PLACEBO [Suspect]
     Indication: COLORECTAL CANCER METASTATIC
     Dosage: 0 MG, UNK
     Route: 048
     Dates: start: 20080620
  3. *CALCIUM FOLINATE [Suspect]
     Indication: COLORECTAL CANCER METASTATIC
     Dosage: 640 MG, CYCLIC, EVERY 15 DAYS (TDD640MG)
     Route: 042
     Dates: start: 20080620
  4. *FLUOROURACIL [Suspect]
     Indication: COLORECTAL CANCER METASTATIC
     Dosage: 3820 MG, CYCLIC, EVERY 15 DAYS
     Route: 042
     Dates: start: 20080620
  5. ATENOLOL [Concomitant]
     Dosage: UNK
     Route: 048
     Dates: start: 20080101
  6. METFORMIN [Concomitant]
     Dosage: UNK
     Route: 048
     Dates: start: 19940101
  7. KETAZOLAM [Concomitant]
     Dosage: UNK
     Route: 048
     Dates: start: 19940101
  8. LOPERAMIDE [Concomitant]
     Dosage: UNK
     Route: 048
     Dates: start: 20080627
  9. GLIBENCLAMIDE [Concomitant]
     Dosage: UNK
     Route: 048
     Dates: start: 20080101

REACTIONS (3)
  - ATAXIA [None]
  - DIZZINESS [None]
  - PUPILS UNEQUAL [None]
